FAERS Safety Report 10169127 (Version 1)
Quarter: 2014Q2

REPORT INFORMATION
  Report Type: Spontaneous
  Country: US (occurrence: US)
  Receive Date: 20140513
  Receipt Date: 20140513
  Transmission Date: 20141212
  Serious: No
  Sender: FDA-Public Use
  Company Number: US-TARO-2013P1006238

PATIENT
  Age: 4 Year
  Sex: Female
  Weight: 19.05 kg

DRUGS (1)
  1. CETIRIZINE HCL CHILDREN ORAL SOLUTION ALLERGY 1MG/ML (SUGARFREE GRAPE) [Suspect]
     Dates: start: 20130504, end: 20130512

REACTIONS (1)
  - Vulvovaginal erythema [Unknown]
